FAERS Safety Report 6812595-9 (Version None)
Quarter: 2010Q3

REPORT INFORMATION
  Report Type: 
  Country: None (occurrence: None)
  Receive Date: 20100701
  Receipt Date: 20100623
  Transmission Date: 20110219
  Serious: Yes (Hospitalization, Other)
  Sender: FDA-Public Use
  Company Number: JP-PFIZER INC-2010073120

PATIENT
  Age: 65 Year
  Sex: Female
  Weight: 49.8 kg

DRUGS (3)
  1. NORVASC [Suspect]
     Indication: HYPERTENSION
     Dosage: 5 MG, 1X/DAY
     Route: 048
     Dates: start: 20090817, end: 20100609
  2. LASIX [Concomitant]
     Dosage: UNK
     Dates: start: 20100430
  3. GLUCONSAN K [Concomitant]

REACTIONS (6)
  - ASPARTATE AMINOTRANSFERASE INCREASED [None]
  - BLOOD ALKALINE PHOSPHATASE INCREASED [None]
  - COLLAGEN DISORDER [None]
  - ERYTHEMA [None]
  - LIVER DISORDER [None]
  - OEDEMA [None]
